FAERS Safety Report 22635791 (Version 1)
Quarter: 2023Q2

REPORT INFORMATION
  Report Type: Spontaneous
  Country: US (occurrence: None)
  Receive Date: 20230620
  Receipt Date: 20230620
  Transmission Date: 20230722
  Serious: Yes (Other)
  Sender: FDA-Public Use
  Company Number: None

PATIENT
  Sex: Female

DRUGS (41)
  1. TADALAFIL [Suspect]
     Active Substance: TADALAFIL
     Indication: Cardiac failure
     Route: 048
     Dates: start: 20210616
  2. ALBUTEROL AER HFA [Concomitant]
  3. ALBUTEROL NEB 0.083% [Concomitant]
  4. ALPRAZOLAM TAB [Concomitant]
  5. AMLODIPINE [Concomitant]
  6. AMLODIPINE [Concomitant]
     Active Substance: AMLODIPINE BESYLATE
  7. APAP/CODEINE [Concomitant]
  8. ASPIRIN LOW TAB [Concomitant]
  9. ATORVASTATIN [Concomitant]
  10. AZITHROMYCIN [Concomitant]
     Active Substance: AZITHROMYCIN
  11. BASAGLAR [Concomitant]
     Active Substance: INSULIN GLARGINE
  12. CARVEDIOLOL [Concomitant]
  13. DILTIAZEM [Concomitant]
     Active Substance: DILTIAZEM
  14. EFFEXOR XR [Concomitant]
     Active Substance: VENLAFAXINE HYDROCHLORIDE
  15. EZETIMIBE [Concomitant]
     Active Substance: EZETIMIBE
  16. FLUCONAZOLE [Concomitant]
     Active Substance: FLUCONAZOLE
  17. FLUCONAZOLE [Concomitant]
     Active Substance: FLUCONAZOLE
  18. FUROSEMIDE [Concomitant]
     Active Substance: FUROSEMIDE
  19. GABAPENTIN [Concomitant]
     Active Substance: GABAPENTIN
  20. GABAPENTIN [Concomitant]
     Active Substance: GABAPENTIN
  21. GABAPENTIN [Concomitant]
  22. HYDROCHLOROTHIAZIDE [Concomitant]
     Active Substance: HYDROCHLOROTHIAZIDE
  23. IBUPROFEN [Concomitant]
     Active Substance: IBUPROFEN
  24. KLOR-CON [Concomitant]
     Active Substance: POTASSIUM CHLORIDE
  25. LIPITOR [Concomitant]
  26. MELOXICAM [Concomitant]
     Active Substance: MELOXICAM
  27. METAXALONE [Concomitant]
     Active Substance: METAXALONE
  28. METHOCARBAMOL [Concomitant]
     Active Substance: METHOCARBAMOL
  29. NICOTINE [Concomitant]
     Active Substance: NICOTINE
  30. OMEPRAZOLE [Concomitant]
     Active Substance: OMEPRAZOLE
  31. ONDANSETRON [Concomitant]
     Active Substance: ONDANSETRON
  32. POTASSIUM POW CHLORIDE [Concomitant]
  33. TORSEMIDE [Concomitant]
     Active Substance: TORSEMIDE
  34. TORSEMIDE [Concomitant]
     Active Substance: TORSEMIDE
  35. TRELEGY [Concomitant]
  36. TRULICITY [Concomitant]
     Active Substance: DULAGLUTIDE
  37. VALACYCLOVIR [Concomitant]
     Active Substance: VALACYCLOVIR HYDROCHLORIDE
  38. VALTREX [Concomitant]
     Active Substance: VALACYCLOVIR HYDROCHLORIDE
  39. VENLAFAXINE [Concomitant]
     Active Substance: VENLAFAXINE HYDROCHLORIDE
  40. VITAMIN D [Concomitant]
     Active Substance: VITAMIN D NOS
  41. XANAX [Concomitant]
     Active Substance: ALPRAZOLAM

REACTIONS (1)
  - Lung neoplasm malignant [None]
